FAERS Safety Report 16072373 (Version 1)
Quarter: 2019Q1

REPORT INFORMATION
  Report Type: Spontaneous
  Country: US (occurrence: US)
  Receive Date: 20190314
  Receipt Date: 20190314
  Transmission Date: 20190418
  Serious: No
  Sender: FDA-Public Use
  Company Number: CA-ALLERGAN-1847263US

PATIENT
  Sex: Female

DRUGS (1)
  1. SALOFALK 1000 MG SUPPOSITORIES (MESALAZINE) [Suspect]
     Active Substance: MESALAMINE
     Indication: PROCTITIS ULCERATIVE
     Dosage: 1000 MG, UNKNOWN
     Route: 054
     Dates: start: 20180801, end: 20180827

REACTIONS (8)
  - Headache [Unknown]
  - Nausea [Unknown]
  - Disturbance in attention [Unknown]
  - Haemorrhage [Not Recovered/Not Resolved]
  - Back pain [Unknown]
  - Decreased interest [Unknown]
  - Pyrexia [Unknown]
  - Abdominal pain [Unknown]
